FAERS Safety Report 8842120 (Version 1)
Quarter: 2012Q4

REPORT INFORMATION
  Report Type: Spontaneous
  Country: US (occurrence: None)
  Receive Date: 20121015
  Receipt Date: 20121015
  Transmission Date: 20130627
  Serious: Yes (Other)
  Sender: FDA-Public Use
  Company Number: None

PATIENT
  Sex: Female

DRUGS (1)
  1. RELISTOR [Suspect]
     Indication: CONSTIPATION
     Dosage: 12mg every other day sq
     Route: 058
     Dates: start: 20121011, end: 20121011

REACTIONS (6)
  - Dyspnoea [None]
  - Flushing [None]
  - Dizziness [None]
  - Thirst [None]
  - Product quality issue [None]
  - Feeling hot [None]
